FAERS Safety Report 21359941 (Version 2)
Quarter: 2022Q4

REPORT INFORMATION
  Report Type: Spontaneous
  Country: CA (occurrence: CA)
  Receive Date: 20220921
  Receipt Date: 20221003
  Transmission Date: 20230113
  Serious: Yes (Other)
  Sender: FDA-Public Use
  Company Number: CA-PFIZER INC-PV202200067155

PATIENT
  Age: 66 Year
  Sex: Male

DRUGS (4)
  1. LORBRENA [Suspect]
     Active Substance: LORLATINIB
     Indication: Anaplastic lymphoma kinase gene mutation
     Dosage: 100 MG
     Dates: start: 20211001
  2. EMPAGLIFLOZIN [Concomitant]
     Active Substance: EMPAGLIFLOZIN
     Dosage: 10 MG, 1X/DAY
  3. LASIX [Concomitant]
     Active Substance: FUROSEMIDE
     Dosage: 60 MG, 1X/DAY
     Dates: start: 20220812
  4. SPIRONOLACTONE [Concomitant]
     Active Substance: SPIRONOLACTONE
     Dosage: 12.5 MG, 1X/DAY

REACTIONS (6)
  - Cardiac failure congestive [Unknown]
  - Pleural effusion [Unknown]
  - Fluid retention [Unknown]
  - Oedema peripheral [Unknown]
  - Cognitive disorder [Unknown]
  - Dyspnoea [Recovering/Resolving]
